FAERS Safety Report 8544192-1 (Version None)
Quarter: 2012Q3

REPORT INFORMATION
  Report Type: 
  Country: None (occurrence: None)
  Receive Date: 20120718
  Receipt Date: 20120718
  Transmission Date: 20120928
  Serious: No
  Sender: FDA-Public Use
  Company Number: None

PATIENT
  Age: 58 Year
  Sex: Female
  Weight: 83.2 kg

DRUGS (1)
  1. ANASTRAZOLE [Suspect]
     Dosage: 1 MG QD PO
     Route: 048
     Dates: start: 20100901, end: 20120501

REACTIONS (2)
  - PRODUCT SUBSTITUTION ISSUE [None]
  - ARTHRALGIA [None]
